FAERS Safety Report 7293322-0 (Version None)
Quarter: 2011Q1

REPORT INFORMATION
  Report Type: 
  Country: None (occurrence: None)
  Receive Date: 20110215
  Receipt Date: 20110204
  Transmission Date: 20110831
  Serious: Yes (Hospitalization, Other)
  Sender: FDA-Public Use
  Company Number: US-NOVOPROD-322851

PATIENT
  Sex: Male

DRUGS (16)
  1. HYDRALAZINE [Concomitant]
     Indication: PRODUCT USED FOR UNKNOWN INDICATION
  2. LEVEMIR [Suspect]
     Indication: BLOOD GLUCOSE INCREASED
     Dosage: UNK
     Route: 058
     Dates: start: 20101224
  3. NOVOLOG [Suspect]
     Indication: BLOOD GLUCOSE INCREASED
     Dosage: UNK
     Dates: start: 20101224
  4. NORVASC [Concomitant]
     Indication: PRODUCT USED FOR UNKNOWN INDICATION
  5. SODIUM BICARBONATE [Concomitant]
     Indication: PRODUCT USED FOR UNKNOWN INDICATION
  6. CELLCEPT                           /01275102/ [Concomitant]
     Indication: RENAL TRANSPLANT
  7. PROGRAF [Concomitant]
     Indication: PRODUCT USED FOR UNKNOWN INDICATION
  8. IMDUR [Concomitant]
     Indication: PRODUCT USED FOR UNKNOWN INDICATION
  9. DIFLUCAN [Concomitant]
     Indication: PRODUCT USED FOR UNKNOWN INDICATION
  10. PREDNISONE [Concomitant]
     Indication: RENAL TRANSPLANT
     Dosage: UNK
  11. TOPROL-XL [Concomitant]
     Indication: PRODUCT USED FOR UNKNOWN INDICATION
  12. COUMADIN [Concomitant]
     Indication: PRODUCT USED FOR UNKNOWN INDICATION
  13. VALCYTE [Concomitant]
     Indication: RENAL TRANSPLANT
  14. PRAVACHOL [Concomitant]
     Indication: PRODUCT USED FOR UNKNOWN INDICATION
  15. BACTRIM [Concomitant]
     Indication: PRODUCT USED FOR UNKNOWN INDICATION
  16. PEPCID                             /06376601/ [Concomitant]
     Indication: PRODUCT USED FOR UNKNOWN INDICATION

REACTIONS (7)
  - BLOOD GLUCOSE INCREASED [None]
  - WHEEZING [None]
  - BK VIRUS INFECTION [None]
  - PAIN IN EXTREMITY [None]
  - KIDNEY TRANSPLANT REJECTION [None]
  - INJECTION SITE HAEMORRHAGE [None]
  - CHEST DISCOMFORT [None]
